FAERS Safety Report 6745673-3 (Version None)
Quarter: 2010Q2

REPORT INFORMATION
  Report Type: 
  Country: None (occurrence: None)
  Receive Date: 20100528
  Receipt Date: 20100517
  Transmission Date: 20101027
  Serious: Yes (Other)
  Sender: FDA-Public Use
  Company Number: DE-NOVOPROD-308168

PATIENT
  Sex: Female
  Weight: 83.5 kg

DRUGS (11)
  1. SIBA FLEXPEN [Suspect]
     Indication: TYPE 2 DIABETES MELLITUS
     Dosage: UNK
     Dates: start: 20090923
  2. NOVORAPID FLEXPEN [Suspect]
     Indication: TYPE 2 DIABETES MELLITUS
     Dosage: UNK
     Dates: start: 20090923
  3. ASPIRIN [Concomitant]
     Dosage: UNK
     Route: 048
     Dates: start: 20040101
  4. SIMVASTATIN [Concomitant]
     Dosage: UNK
     Route: 048
     Dates: start: 20040101
  5. VENLAFAXINE HCL [Concomitant]
     Dosage: UNK
     Route: 048
     Dates: start: 20080101
  6. MUSARIL [Concomitant]
     Dosage: UNK
     Route: 048
     Dates: start: 20080101
  7. NEBIVOLOL [Concomitant]
     Dosage: UNK
     Route: 048
     Dates: start: 20040101
  8. SPIRO [Concomitant]
     Dosage: UNK
     Route: 048
     Dates: start: 20040101
  9. FUROSEMID                          /00032601/ [Concomitant]
     Dosage: UNK
     Route: 048
     Dates: start: 20040101
  10. PENTAERYTHRITOL TETRANITRATE [Concomitant]
     Dosage: UNK
     Route: 048
     Dates: start: 20040101
  11. CELEBREX [Concomitant]
     Dosage: UNK
     Route: 048
     Dates: start: 20050101

REACTIONS (1)
  - LOSS OF CONSCIOUSNESS [None]
